FAERS Safety Report 9229154 (Version 8)
Quarter: 2018Q2

REPORT INFORMATION
  Report Type: Report from Study
  Country: US (occurrence: US)
  Receive Date: 20130412
  Receipt Date: 20180403
  Transmission Date: 20180711
  Serious: Yes (Hospitalization, Other)
  Sender: FDA-Public Use
  Company Number: US-ASTELLAS-2013US002537

PATIENT
  Age: 57 Year
  Sex: Male

DRUGS (13)
  1. MEVACOR [Concomitant]
     Active Substance: LOVASTATIN
     Indication: PRODUCT USED FOR UNKNOWN INDICATION
     Route: 048
  2. COUMADIN [Concomitant]
     Active Substance: WARFARIN SODIUM
     Indication: PRODUCT USED FOR UNKNOWN INDICATION
     Route: 048
  3. FUROSEMIDE. [Concomitant]
     Active Substance: FUROSEMIDE
     Indication: PRODUCT USED FOR UNKNOWN INDICATION
     Route: 048
  4. FUROSEMIDE. [Concomitant]
     Active Substance: FUROSEMIDE
     Route: 048
     Dates: start: 20121109
  5. LOPRESSOR [Concomitant]
     Active Substance: METOPROLOL TARTRATE
     Indication: PRODUCT USED FOR UNKNOWN INDICATION
     Route: 048
  6. MYFORTIC [Concomitant]
     Active Substance: MYCOPHENOLATE SODIUM
     Indication: PRODUCT USED FOR UNKNOWN INDICATION
     Route: 048
  7. TACROLIMUS. [Suspect]
     Active Substance: TACROLIMUS
     Route: 048
  8. LASIX [Concomitant]
     Active Substance: FUROSEMIDE
     Indication: PRODUCT USED FOR UNKNOWN INDICATION
     Route: 048
  9. TACROLIMUS. [Suspect]
     Active Substance: TACROLIMUS
     Indication: RENAL TRANSPLANT
     Route: 048
     Dates: start: 1993
  10. TACROLIMUS. [Suspect]
     Active Substance: TACROLIMUS
     Indication: PANCREAS TRANSPLANT
     Route: 048
     Dates: start: 20050324
  11. COUMADIN [Concomitant]
     Active Substance: WARFARIN SODIUM
     Route: 048
  12. TACROLIMUS. [Suspect]
     Active Substance: TACROLIMUS
     Route: 048
  13. MYFORTIC [Concomitant]
     Active Substance: MYCOPHENOLATE SODIUM
     Indication: PRODUCT USED FOR UNKNOWN INDICATION
     Route: 048

REACTIONS (33)
  - Head injury [Unknown]
  - Cerebrovascular accident [Unknown]
  - Fatigue [Unknown]
  - Renal transplant [Unknown]
  - Tremor [Unknown]
  - Peripheral vascular disorder [Unknown]
  - Fall [Unknown]
  - Blood creatinine increased [Unknown]
  - Off label use [Unknown]
  - Cardiac failure congestive [Recovering/Resolving]
  - Asthenia [Unknown]
  - Blood urea increased [Unknown]
  - Coronary artery bypass [Recovered/Resolved]
  - Renal transplant failure [Unknown]
  - Heart rate irregular [Unknown]
  - Arthralgia [Unknown]
  - Arthritis [Unknown]
  - Aortic valve disease [Unknown]
  - Cataract [Unknown]
  - Blood parathyroid hormone increased [Unknown]
  - Muscular weakness [Unknown]
  - Cardiac disorder [Unknown]
  - Mood altered [Unknown]
  - Weight increased [Unknown]
  - Constipation [Not Recovered/Not Resolved]
  - Dizziness [Not Recovered/Not Resolved]
  - Arteriosclerosis coronary artery [Unknown]
  - Vertigo [Unknown]
  - Hypertension [Unknown]
  - Plantar fasciitis [Unknown]
  - Abdominal distension [Not Recovered/Not Resolved]
  - Pain in extremity [Unknown]
  - Vision blurred [Unknown]

NARRATIVE: CASE EVENT DATE: 2001
